FAERS Safety Report 5468111-X (Version None)
Quarter: 2007Q3

REPORT INFORMATION
  Report Type: 
  Country: None (occurrence: None)
  Receive Date: 20070820
  Receipt Date: 20070430
  Transmission Date: 20080115
  Serious: No
  Sender: FDA-Public Use
  Company Number: WAES 0703USA00979

PATIENT
  Age: 61 Year
  Sex: Female
  Weight: 85.7298 kg

DRUGS (3)
  1. JANUVIA [Suspect]
     Indication: TYPE 2 DIABETES MELLITUS
     Dosage: 100 MG/DAILY/PO
     Route: 048
     Dates: start: 20070302, end: 20070305
  2. ARAVA [Concomitant]
  3. GLUCOPHAGE [Concomitant]

REACTIONS (4)
  - NASAL CONGESTION [None]
  - PHARYNGOLARYNGEAL PAIN [None]
  - RHINITIS [None]
  - UPPER RESPIRATORY TRACT CONGESTION [None]
